FAERS Safety Report 25414062 (Version 2)
Quarter: 2025Q3

REPORT INFORMATION
  Report Type: Spontaneous
  Country: CH (occurrence: CH)
  Receive Date: 20250609
  Receipt Date: 20250810
  Transmission Date: 20251021
  Serious: Yes (Hospitalization, Other)
  Sender: ALEXION PHARMACEUTICALS
  Company Number: None

PATIENT
  Age: 71 Year
  Sex: Male
  Weight: 60 kg

DRUGS (8)
  1. CALQUENCE [Interacting]
     Active Substance: ACALABRUTINIB
     Route: 065
  2. PREDNISONE [Interacting]
     Active Substance: PREDNISONE
     Dosage: 10 MILLIGRAM, QD
     Route: 065
     Dates: start: 20250415
  3. PREDNISONE [Interacting]
     Active Substance: PREDNISONE
     Route: 065
     Dates: start: 20250221, end: 20250414
  4. PREDNISONE [Interacting]
     Active Substance: PREDNISONE
     Route: 065
  5. PREDNISONE [Interacting]
     Active Substance: PREDNISONE
     Route: 065
     Dates: start: 20250114, end: 20250203
  6. PREDNISONE [Interacting]
     Active Substance: PREDNISONE
     Route: 065
     Dates: start: 20250204, end: 20250210
  7. PREDNISONE [Interacting]
     Active Substance: PREDNISONE
     Route: 065
     Dates: start: 20250211, end: 20250214
  8. PREDNISONE [Interacting]
     Active Substance: PREDNISONE
     Route: 065
     Dates: start: 20250214, end: 20250220

REACTIONS (4)
  - Diplopia [Recovered/Resolved]
  - VIth nerve paralysis [Recovered/Resolved]
  - Aspergillus infection [Not Recovered/Not Resolved]
  - Drug interaction [Recovered/Resolved]

NARRATIVE: CASE EVENT DATE: 20250418
